FAERS Safety Report 5239783-X (Version None)
Quarter: 2007Q1

REPORT INFORMATION
  Report Type: 
  Country: None (occurrence: None)
  Receive Date: 20070216
  Receipt Date: 20070205
  Transmission Date: 20070707
  Serious: Yes (Other)
  Sender: FDA-Public Use
  Company Number: HQWYE725006FEB07

PATIENT

DRUGS (7)
  1. SIROLIMUS [Suspect]
     Indication: PROPHYLAXIS AGAINST GRAFT VERSUS HOST DISEASE
     Dosage: 2.5MG/M2, MAX 4MG DAILY, TARGET LEVEL 3-12NG/ML
     Route: 048
  2. SIROLIMUS [Suspect]
     Indication: IMMUNOSUPPRESSANT DRUG THERAPY
     Dosage: TAPERED AT 6 MONTHS AFTER TRANSPLANT
     Route: 048
  3. SIROLIMUS [Suspect]
     Indication: STEM CELL TRANSPLANT
  4. SIROLIMUS [Suspect]
     Indication: ACUTE LYMPHOCYTIC LEUKAEMIA
  5. METHOTREXATE [Concomitant]
     Dosage: 5MG/M2, D+1, +3, AND +6 FOR ALL RECIPIENTS, D+11 FOR RECIPIENTS OF UD BM/PBSC
     Route: 042
  6. TACROLIMUS [Concomitant]
     Dosage: CONTINUOUS INFUSION; TARGET LEVEL 5-10NG/ML
     Route: 042
  7. TACROLIMUS [Concomitant]
     Dosage: TAPERED
     Route: 048

REACTIONS (2)
  - THROMBOTIC MICROANGIOPATHY [None]
  - VENOOCCLUSIVE DISEASE [None]
